FAERS Safety Report 8426864-2 (Version None)
Quarter: 2012Q2

REPORT INFORMATION
  Report Type: 
  Country: None (occurrence: None)
  Receive Date: 20120611
  Receipt Date: 20120601
  Transmission Date: 20120825
  Serious: Yes (Hospitalization)
  Sender: FDA-Public Use
  Company Number: CZ-JNJFOC-20120602039

PATIENT
  Sex: Female
  Weight: 55 kg

DRUGS (4)
  1. KOMBI-KALZ [Concomitant]
     Dates: start: 20110520, end: 20120525
  2. FERRO-FOLGAMMA [Concomitant]
     Dates: start: 20110113, end: 20120524
  3. REMICADE [Suspect]
     Indication: ANKYLOSING SPONDYLITIS
     Route: 042
     Dates: start: 20090310
  4. REMICADE [Suspect]
     Route: 042
     Dates: start: 20120419, end: 20120419

REACTIONS (2)
  - PAPILLOEDEMA [None]
  - OPTIC NEURITIS [None]
